FAERS Safety Report 22394121 (Version 1)
Quarter: 2023Q2

REPORT INFORMATION
  Report Type: Spontaneous
  Country: US (occurrence: None)
  Receive Date: 20230601
  Receipt Date: 20230601
  Transmission Date: 20230721
  Serious: No
  Sender: FDA-Public Use
  Company Number: 2023A120968

PATIENT
  Sex: Female

DRUGS (2)
  1. LYNPARZA [Suspect]
     Active Substance: OLAPARIB
     Indication: Neoplasm malignant
     Dosage: 150.0MG UNKNOWN
     Route: 048
  2. CYMBALTA [Interacting]
     Active Substance: DULOXETINE HYDROCHLORIDE

REACTIONS (7)
  - Nausea [Unknown]
  - Weight decreased [Unknown]
  - Drug interaction [Unknown]
  - Dairy intolerance [Unknown]
  - Constipation [Unknown]
  - Discoloured vomit [Unknown]
  - Eating disorder [Unknown]
